FAERS Safety Report 22994087 (Version 3)
Quarter: 2023Q4

REPORT INFORMATION
  Report Type: Spontaneous
  Country: CN (occurrence: CN)
  Receive Date: 20230927
  Receipt Date: 20231004
  Transmission Date: 20240110
  Serious: Yes (Death, Life-Threatening, Other)
  Sender: FDA-Public Use
  Company Number: CN-SA-SAC20230926001189

PATIENT
  Age: 86 Year
  Sex: Male

DRUGS (6)
  1. CLOPIDOGREL BISULFATE [Suspect]
     Active Substance: CLOPIDOGREL BISULFATE
     Indication: Antiplatelet therapy
     Dosage: 75 MG, QD
     Route: 048
     Dates: start: 20230905, end: 20230907
  2. CLOPIDOGREL BISULFATE [Suspect]
     Active Substance: CLOPIDOGREL BISULFATE
     Dosage: 75 MG, QD
     Route: 048
     Dates: start: 20230910, end: 20230914
  3. ASPIRIN [Suspect]
     Active Substance: ASPIRIN
     Indication: Antiplatelet therapy
     Dosage: 100 MG, QD
     Route: 048
     Dates: start: 20230909, end: 20230910
  4. ALTEPLASE [Suspect]
     Active Substance: ALTEPLASE
     Indication: Thrombolysis
     Dosage: 5.94 MG, QD
     Route: 042
     Dates: start: 20230904, end: 20230904
  5. ALTEPLASE [Suspect]
     Active Substance: ALTEPLASE
     Dosage: 53.46 MG, QD
     Dates: start: 20230904, end: 20230904
  6. HERBALS [Concomitant]
     Active Substance: HERBALS
     Indication: Thrombosis prophylaxis
     Dosage: 500 MG QD
     Route: 041
     Dates: start: 20230905, end: 20230914

REACTIONS (9)
  - Respiratory failure [Fatal]
  - Hypovolaemic shock [Fatal]
  - Septic shock [Fatal]
  - Circulatory collapse [Fatal]
  - Pneumonia [Fatal]
  - Myocardial necrosis marker increased [Not Recovered/Not Resolved]
  - Haemorrhage subcutaneous [Not Recovered/Not Resolved]
  - Ecchymosis [Not Recovered/Not Resolved]
  - Lower gastrointestinal haemorrhage [Not Recovered/Not Resolved]

NARRATIVE: CASE EVENT DATE: 20230906
